FAERS Safety Report 7543197-7 (Version None)
Quarter: 2011Q2

REPORT INFORMATION
  Report Type: 
  Country: None (occurrence: None)
  Receive Date: 20110613
  Receipt Date: 20110606
  Transmission Date: 20111010
  Serious: Yes (Death)
  Sender: FDA-Public Use
  Company Number: FR-MERCK-1106USA01105

PATIENT
  Age: 52 Year
  Sex: Male

DRUGS (4)
  1. EMEND [Suspect]
     Indication: PROPHYLAXIS OF NAUSEA AND VOMITING
     Route: 048
     Dates: start: 20110505
  2. POLARAMINE [Suspect]
     Route: 042
     Dates: start: 20110505
  3. ERBITUX [Suspect]
     Indication: TONSIL CANCER
     Route: 042
     Dates: start: 20110505
  4. ATACAND [Concomitant]
     Route: 065

REACTIONS (1)
  - DEATH [None]
